FAERS Safety Report 11057938 (Version 1)
Quarter: 2015Q2

REPORT INFORMATION
  Report Type: Spontaneous
  Country: TR (occurrence: TR)
  Receive Date: 20150423
  Receipt Date: 20150423
  Transmission Date: 20150821
  Serious: Yes (Other)
  Sender: FDA-Public Use
  Company Number: TR-SUN PHARMACEUTICAL INDUSTRIES LTD-2015RR-95948

PATIENT
  Age: 28 Year
  Sex: Male

DRUGS (2)
  1. QUETIAPINE [Suspect]
     Active Substance: QUETIAPINE
     Indication: BIPOLAR I DISORDER
     Dosage: UNK
     Route: 065
  2. LITHIUM. [Interacting]
     Active Substance: LITHIUM
     Indication: BIPOLAR I DISORDER
     Dosage: UNK
     Route: 065

REACTIONS (2)
  - Drug interaction [Unknown]
  - Epilepsy [Unknown]
